FAERS Safety Report 24797938 (Version 5)
Quarter: 2025Q1

REPORT INFORMATION
  Report Type: Report from Study
  Country: US (occurrence: US)
  Receive Date: 20250102
  Receipt Date: 20250324
  Transmission Date: 20250409
  Serious: Yes (Hospitalization, Other)
  Sender: INSMED
  Company Number: US-INSMED, INC.-2024-00173-US

PATIENT
  Age: 66 Year
  Sex: Male

DRUGS (7)
  1. ARIKAYCE [Suspect]
     Active Substance: AMIKACIN
     Indication: Mycobacterium avium complex infection
     Dosage: 590 MILLIGRAM, QD
     Route: 055
     Dates: start: 20231212, end: 202401
  2. ARIKAYCE [Suspect]
     Active Substance: AMIKACIN
     Route: 055
     Dates: start: 202401, end: 2024
  3. ARIKAYCE [Suspect]
     Active Substance: AMIKACIN
     Dosage: 590 MILLIGRAM, TIW
     Route: 055
     Dates: start: 2024, end: 2024
  4. ARIKAYCE [Suspect]
     Active Substance: AMIKACIN
     Dosage: UNK, TIW
     Route: 055
     Dates: start: 20241224, end: 202502
  5. SODIUM CHLORIDE [Suspect]
     Active Substance: SODIUM CHLORIDE
     Indication: Product used for unknown indication
     Dosage: 3 PERCENT, QD
     Route: 065
     Dates: end: 202403
  6. SODIUM CHLORIDE [Suspect]
     Active Substance: SODIUM CHLORIDE
     Dosage: 7 PERCENT, BID
     Route: 065
     Dates: start: 202403
  7. AMIKACIN [Concomitant]
     Active Substance: AMIKACIN
     Indication: Product used for unknown indication
     Route: 042
     Dates: start: 2024

REACTIONS (12)
  - Hospitalisation [Unknown]
  - Bronchiectasis [Unknown]
  - Pulmonary bullae rupture [Unknown]
  - Muscle spasms [Unknown]
  - Cough [Unknown]
  - Weight decreased [Not Recovered/Not Resolved]
  - Colonoscopy [Unknown]
  - Endoscopy [Unknown]
  - Haemoptysis [Unknown]
  - Hypersensitivity [Unknown]
  - Therapy interrupted [Unknown]
  - Device issue [Unknown]

NARRATIVE: CASE EVENT DATE: 20240101
